FAERS Safety Report 20729258 (Version 5)
Quarter: 2023Q1

REPORT INFORMATION
  Report Type: Spontaneous
  Country: US (occurrence: US)
  Receive Date: 20220420
  Receipt Date: 20230321
  Transmission Date: 20230418
  Serious: Yes (Hospitalization, Other)
  Sender: FDA-Public Use
  Company Number: US-SA-2022SA132738

PATIENT
  Age: 61 Year
  Sex: Male

DRUGS (5)
  1. AMBIEN [Suspect]
     Active Substance: ZOLPIDEM TARTRATE
     Indication: Insomnia
     Dosage: UNK
     Route: 065
     Dates: end: 202111
  2. OFEV [Suspect]
     Active Substance: NINTEDANIB
     Indication: Idiopathic pulmonary fibrosis
     Dosage: 150 MG, Q12H
     Route: 048
     Dates: start: 20211012
  3. OFEV [Suspect]
     Active Substance: NINTEDANIB
     Dosage: 600 Q12H
     Route: 048
  4. OFEV [Suspect]
     Active Substance: NINTEDANIB
     Dosage: 300 Q12H
     Route: 048
  5. OXYGEN [Concomitant]
     Active Substance: OXYGEN
     Dosage: 2 L, EVERY NIGHT AT BED TIME AND WHEN HE IS WORKING
     Route: 065

REACTIONS (40)
  - Pneumonia [Unknown]
  - Erectile dysfunction [Unknown]
  - Haematochezia [Unknown]
  - Gastrointestinal sounds abnormal [Unknown]
  - Tension headache [Unknown]
  - Sleep deficit [Unknown]
  - Faeces soft [Unknown]
  - Renal disorder [Unknown]
  - Pulmonary function test decreased [Not Recovered/Not Resolved]
  - Acquired gene mutation [Unknown]
  - Abnormal dreams [Unknown]
  - COVID-19 [Recovered/Resolved]
  - Anxiety [Unknown]
  - Weight increased [Unknown]
  - Feeling abnormal [Not Recovered/Not Resolved]
  - Wheezing [Not Recovered/Not Resolved]
  - Pain [Not Recovered/Not Resolved]
  - Sputum discoloured [Not Recovered/Not Resolved]
  - Increased viscosity of upper respiratory secretion [Not Recovered/Not Resolved]
  - Depressed mood [Not Recovered/Not Resolved]
  - Malaise [Unknown]
  - Nightmare [Unknown]
  - Headache [Unknown]
  - Insomnia [Unknown]
  - Arthralgia [Unknown]
  - Pruritus [Recovered/Resolved]
  - Diarrhoea [Not Recovered/Not Resolved]
  - Fatigue [Unknown]
  - Stress [Unknown]
  - Blood pressure increased [Unknown]
  - Flatulence [Unknown]
  - Constipation [Unknown]
  - Back pain [Unknown]
  - Abdominal pain upper [Unknown]
  - Malaise [Not Recovered/Not Resolved]
  - Fatigue [Unknown]
  - Increased viscosity of bronchial secretion [Not Recovered/Not Resolved]
  - Sputum increased [Not Recovered/Not Resolved]
  - Insomnia [Unknown]
  - Diarrhoea [Unknown]

NARRATIVE: CASE EVENT DATE: 20210101
